FAERS Safety Report 4980467-0 (Version None)
Quarter: 2006Q2

REPORT INFORMATION
  Report Type: 
  Country: None (occurrence: None)
  Receive Date: 20060418
  Receipt Date: 20060405
  Transmission Date: 20061013
  Serious: Yes (Other)
  Sender: FDA-Public Use
  Company Number: 2006047989

PATIENT
  Age: 79 Year
  Sex: Female
  Weight: 59.8748 kg

DRUGS (4)
  1. LYRICA [Suspect]
     Indication: NEUROPATHY PERIPHERAL
     Dosage: 150 MG (50 MG, 3 IN 1 D),  ORAL
     Route: 048
     Dates: start: 20060301
  2. THYROID TAB [Concomitant]
  3. WARFARIN SODIUM [Concomitant]
  4. METHADONE HCL [Concomitant]

REACTIONS (4)
  - ABASIA [None]
  - CONDITION AGGRAVATED [None]
  - DYSSTASIA [None]
  - PAIN [None]
